FAERS Safety Report 13861919 (Version 1)
Quarter: 2017Q3

REPORT INFORMATION
  Report Type: Report from Study
  Country: US (occurrence: US)
  Receive Date: 20170811
  Receipt Date: 20170811
  Transmission Date: 20171127
  Serious: Yes (Death, Hospitalization)
  Sender: FDA-Public Use
  Company Number: US-ACTELION-A-NJ2014-106492

PATIENT
  Age: 95 Year
  Sex: Male

DRUGS (2)
  1. COUMADIN [Concomitant]
     Active Substance: WARFARIN SODIUM
  2. TRACLEER [Suspect]
     Active Substance: BOSENTAN
     Indication: PULMONARY ARTERIAL HYPERTENSION
     Dosage: 125 MG, BID
     Route: 048
     Dates: start: 20090929

REACTIONS (9)
  - Dizziness postural [Unknown]
  - Feeling abnormal [Unknown]
  - Syncope [Unknown]
  - Chest pain [Unknown]
  - Presyncope [Unknown]
  - Fall [Unknown]
  - Ankle fracture [Unknown]
  - Fluid retention [Recovering/Resolving]
  - Death [Fatal]

NARRATIVE: CASE EVENT DATE: 20170803
